FAERS Safety Report 10786946 (Version 1)
Quarter: 2015Q1

REPORT INFORMATION
  Report Type: Spontaneous
  Country: RU (occurrence: RU)
  Receive Date: 20150211
  Receipt Date: 20150211
  Transmission Date: 20150721
  Serious: Yes (Other)
  Sender: FDA-Public Use
  Company Number: RU-GLAXOSMITHKLINE-RU2015GSK016612

PATIENT
  Age: 65 Year
  Sex: Male

DRUGS (4)
  1. AVODART [Suspect]
     Active Substance: DUTASTERIDE
     Indication: PRODUCT USED FOR UNKNOWN INDICATION
     Dosage: 1 DF, QD
     Dates: start: 201410
  2. LOSARTAN [Concomitant]
     Active Substance: LOSARTAN
  3. CARDURA [Suspect]
     Active Substance: DOXAZOSIN MESYLATE
     Indication: PRODUCT USED FOR UNKNOWN INDICATION
     Dosage: UNK
     Dates: start: 201410
  4. NEBILET [Concomitant]
     Active Substance: NEBIVOLOL

REACTIONS (1)
  - Prostatomegaly [Not Recovered/Not Resolved]
